FAERS Safety Report 6507549-6 (Version None)
Quarter: 2009Q4

REPORT INFORMATION
  Report Type: 
  Country: None (occurrence: None)
  Receive Date: 20091216
  Receipt Date: 20091201
  Transmission Date: 20100525
  Serious: Yes (Other)
  Sender: FDA-Public Use
  Company Number: 2009S1000472

PATIENT
  Age: 72 Year
  Sex: Female
  Weight: 58.1 kg

DRUGS (9)
  1. AZATHIOPRINE [Suspect]
     Dates: start: 20050101
  2. ENBREL [Suspect]
     Dosage: 25 MG;QW;SC
     Route: 058
     Dates: start: 20020107
  3. METHOTREXATE [Concomitant]
  4. IPRATROPIUM [Concomitant]
  5. CALCIUM [Concomitant]
  6. FOLIC ACID [Concomitant]
  7. PREDNISONE [Concomitant]
  8. PROPACET 100 [Concomitant]
  9. WARFARIN [Concomitant]

REACTIONS (7)
  - BRONCHITIS CHRONIC [None]
  - CHRONIC OBSTRUCTIVE PULMONARY DISEASE [None]
  - DYSPNOEA [None]
  - ONYCHOMADESIS [None]
  - ONYCHOMYCOSIS [None]
  - RASH [None]
  - STAPHYLOCOCCAL INFECTION [None]
